FAERS Safety Report 8410139-1 (Version None)
Quarter: 2012Q2

REPORT INFORMATION
  Report Type: 
  Country: None (occurrence: None)
  Receive Date: 20120605
  Receipt Date: 20120529
  Transmission Date: 20120825
  Serious: No
  Sender: FDA-Public Use
  Company Number: PHHY2012JP039862

PATIENT
  Sex: Male

DRUGS (1)
  1. LOCHOLEST [Suspect]
     Indication: HYPERLIPIDAEMIA
     Route: 048
     Dates: end: 20111101

REACTIONS (1)
  - ERYTHEMA MULTIFORME [None]
